FAERS Safety Report 5521762-6 (Version None)
Quarter: 2007Q4

REPORT INFORMATION
  Report Type: 
  Country: None (occurrence: None)
  Receive Date: 20071120
  Receipt Date: 20071112
  Transmission Date: 20080405
  Serious: Yes (Disabling, Other)
  Sender: FDA-Public Use
  Company Number: PHBS2007IL17497

PATIENT
  Age: 72 Year
  Sex: Male
  Weight: 77 kg

DRUGS (3)
  1. ZOLEDRONIC ACID [Suspect]
     Indication: METASTASES TO PROSTATE
     Dosage: 4 MG, QMO
     Route: 042
     Dates: start: 20060301, end: 20070601
  2. TAXOTERE [Concomitant]
     Dates: start: 20061001, end: 20070101
  3. TAXOTERE [Concomitant]
     Dates: start: 20070601, end: 20070801

REACTIONS (2)
  - OSTEONECROSIS [None]
  - TOOTH EXTRACTION [None]
